FAERS Safety Report 23867918 (Version 2)
Quarter: 2024Q2

REPORT INFORMATION
  Report Type: Spontaneous
  Country: JP (occurrence: JP)
  Receive Date: 20240517
  Receipt Date: 20240626
  Transmission Date: 20240716
  Serious: Yes (Hospitalization, Other)
  Sender: FDA-Public Use
  Company Number: JP-ELI_LILLY_AND_COMPANY-JP202405005310

PATIENT
  Age: 78 Year
  Sex: Male
  Weight: 66 kg

DRUGS (11)
  1. OLUMIANT [Suspect]
     Active Substance: BARICITINIB
     Indication: Rheumatoid arthritis
     Dosage: 2 MG, DAILY
     Route: 048
     Dates: start: 202311, end: 20240312
  2. AZULFIDINE [Concomitant]
     Active Substance: SULFASALAZINE
  3. AMBROXOL HYDROCHLORIDE [Concomitant]
     Active Substance: AMBROXOL HYDROCHLORIDE
     Dosage: 45 MG, DAILY
  4. ROXITHROMYCIN [Concomitant]
     Active Substance: ROXITHROMYCIN
     Dosage: 150 MG, DAILY
     Route: 048
  5. VALSARTAN [Concomitant]
     Active Substance: VALSARTAN
     Dosage: 80 MG, DAILY
     Route: 048
  6. AMLODIPINE [Concomitant]
     Active Substance: AMLODIPINE BESYLATE
     Dosage: 5 MG, DAILY
     Route: 048
  7. CARBOCYSTEINE [Concomitant]
     Active Substance: CARBOCYSTEINE
     Dosage: 250 MG, TID
  8. TAMSULOSIN HYDROCHLORIDE [Concomitant]
     Active Substance: TAMSULOSIN HYDROCHLORIDE
     Dosage: 0.2 MG, DAILY
  9. TAKECAB OD [Concomitant]
     Dosage: 10 MG, DAILY
  10. AMITIZA [Concomitant]
     Active Substance: LUBIPROSTONE
  11. PREDNISOLONE [Concomitant]
     Active Substance: PREDNISOLONE
     Dosage: 5 MG, BID
     Route: 048

REACTIONS (6)
  - Chronic respiratory failure [Recovering/Resolving]
  - COVID-19 pneumonia [Recovering/Resolving]
  - Interstitial lung disease [Recovering/Resolving]
  - Lung opacity [Recovering/Resolving]
  - Pneumocystis jirovecii pneumonia [Recovering/Resolving]
  - Pneumonia bacterial [Recovering/Resolving]

NARRATIVE: CASE EVENT DATE: 20231228
